FAERS Safety Report 9548710 (Version 1)
Quarter: 2013Q3

REPORT INFORMATION
  Report Type: Spontaneous
  Country: US (occurrence: None)
  Receive Date: 20130724
  Receipt Date: 20130724
  Transmission Date: 20140515
  Serious: Yes (Other)
  Sender: FDA-Public Use
  Company Number: PHEH2013US009734

PATIENT
  Age: 11 Year
  Sex: Male
  Weight: 70.3 kg

DRUGS (1)
  1. FANAPT (ILOPERIDONE) TABLET [Suspect]
     Indication: OFF LABEL USE
     Route: 048
     Dates: start: 20130402, end: 20130402

REACTIONS (1)
  - Tachycardia [None]
